FAERS Safety Report 18997766 (Version 3)
Quarter: 2021Q3

REPORT INFORMATION
  Report Type: Spontaneous
  Country: GB (occurrence: GB)
  Receive Date: 20210311
  Receipt Date: 20210811
  Transmission Date: 20211014
  Serious: Yes (Other)
  Sender: FDA-Public Use
  Company Number: NVSC2020GB345909

PATIENT
  Age: 55 Year
  Sex: Female
  Weight: 97 kg

DRUGS (64)
  1. TRASTUZUMAB. [Suspect]
     Active Substance: TRASTUZUMAB
     Indication: HER2 POSITIVE BREAST CANCER
     Dosage: 525 MG, Q3W (LOADING DOSE)
     Route: 042
     Dates: start: 20170524, end: 20170524
  2. TRASTUZUMAB. [Suspect]
     Active Substance: TRASTUZUMAB
     Dosage: 378 MG, Q3W
     Route: 042
     Dates: start: 20180516, end: 20190327
  3. OMEPRAZOLE. [Concomitant]
     Active Substance: OMEPRAZOLE
     Indication: DUODENAL ULCER
     Dosage: 20 MG, QD
     Route: 048
     Dates: start: 20120131
  4. ERTAPENEM. [Concomitant]
     Active Substance: ERTAPENEM SODIUM
     Indication: BILIARY SEPSIS
     Dosage: 1 G
     Route: 042
     Dates: start: 20200501, end: 20200502
  5. ERTAPENEM. [Concomitant]
     Active Substance: ERTAPENEM SODIUM
     Indication: CLOSTRIDIUM DIFFICILE INFECTION
     Dosage: 1 G
     Route: 042
     Dates: start: 20201104, end: 20201111
  6. VANCOMYCIN [Concomitant]
     Active Substance: VANCOMYCIN
     Indication: CLOSTRIDIUM DIFFICILE INFECTION
     Dosage: 125 MILLIGRAM, 0.25 DAY
     Route: 048
     Dates: start: 20201030, end: 20201104
  7. CEFUROXIME. [Concomitant]
     Active Substance: CEFUROXIME
     Indication: BILIARY SEPSIS
     Dosage: 250 MILLIGRAM, BID, 0.5 DAY
     Route: 048
     Dates: start: 20200925, end: 20201009
  8. CIPROFLOXACIN. [Concomitant]
     Active Substance: CIPROFLOXACIN
     Indication: CHOLECYSTITIS ACUTE
     Dosage: 500 MG, BID
     Route: 048
     Dates: start: 20200909, end: 20200916
  9. CHLORHEXIDINE GLUCONATE. [Concomitant]
     Active Substance: CHLORHEXIDINE GLUCONATE
     Indication: PRODUCT USED FOR UNKNOWN INDICATION
     Dosage: UNK, 0.25 DAY
     Route: 061
     Dates: start: 20170525
  10. FLUCLOXACILLIN [Concomitant]
     Active Substance: FLUCLOXACILLIN
     Indication: FOLLICULITIS
     Dosage: UNK
     Route: 048
     Dates: start: 20190122
  11. SALIVA SUBSTITUTE [Concomitant]
     Active Substance: CARBOXYMETHYLCELLULOSE SODIUM\DEVICE\SORBINICATE
     Indication: PRODUCT USED FOR UNKNOWN INDICATION
     Dosage: 1 DF
     Route: 060
     Dates: start: 20170526
  12. AMOXICILLIN. [Concomitant]
     Active Substance: AMOXICILLIN
     Indication: ABDOMINAL PAIN
     Dosage: 625 MG, TID
     Route: 048
     Dates: start: 20201211, end: 20201216
  13. PERTUZUMAB. [Suspect]
     Active Substance: PERTUZUMAB
     Dosage: 420 MG, Q3W
     Route: 042
     Dates: start: 20170614, end: 20190327
  14. CIPROFLOXACIN. [Concomitant]
     Active Substance: CIPROFLOXACIN
     Dosage: 500 MG, BID
     Route: 048
     Dates: start: 20200823, end: 20200828
  15. METRONIDAZOLE. [Concomitant]
     Active Substance: METRONIDAZOLE
     Indication: CHOLECYSTITIS ACUTE
     Dosage: UNK
     Route: 065
     Dates: start: 20200909, end: 20200914
  16. TEICOPLANIN [Concomitant]
     Active Substance: TEICOPLANIN
     Indication: PYREXIA
     Dosage: UNK
     Route: 042
     Dates: start: 20200724, end: 20200728
  17. NERATINIB [Concomitant]
     Active Substance: NERATINIB
     Indication: PRODUCT USED FOR UNKNOWN INDICATION
     Dosage: 240 MG, QD
     Route: 048
     Dates: start: 20200919, end: 20201104
  18. MEROPENEM. [Concomitant]
     Active Substance: MEROPENEM
     Indication: PYREXIA
     Dosage: UNK
     Route: 042
     Dates: start: 20201130, end: 20201209
  19. TRASTUZUMAB EMTANSINE [Suspect]
     Active Substance: ADO-TRASTUZUMAB EMTANSINE
     Dosage: 200 MG, Q3W
     Route: 042
     Dates: start: 20190627, end: 20190718
  20. CEFTRIAXONE. [Concomitant]
     Active Substance: CEFTRIAXONE
     Dosage: 250 MG, BID
     Route: 048
     Dates: start: 20200928, end: 20201012
  21. ZOLEDRONIC ACID [Concomitant]
     Active Substance: ZOLEDRONIC ACID
     Indication: PRODUCT USED FOR UNKNOWN INDICATION
     Dosage: 4 MILLIGRAM, QID, ONCE IN EVERY 3 TO4 WEEKS.
     Route: 042
     Dates: start: 20170525
  22. CIPROFLOXACIN. [Concomitant]
     Active Substance: CIPROFLOXACIN
     Dosage: 500 MG, BID
     Route: 048
     Dates: start: 20200815, end: 20200819
  23. METRONIDAZOLE. [Concomitant]
     Active Substance: METRONIDAZOLE
     Indication: ABDOMINAL PAIN UPPER
     Dosage: UNK
     Route: 042
     Dates: start: 20200630, end: 20200709
  24. AMIKACIN. [Concomitant]
     Active Substance: AMIKACIN
     Indication: BILIARY SEPSIS
     Dosage: UNK, QD
     Route: 042
     Dates: start: 20200504, end: 20200504
  25. TEICOPLANIN [Concomitant]
     Active Substance: TEICOPLANIN
     Indication: BILIARY SEPSIS
     Dosage: UNK
     Route: 042
     Dates: start: 20200502, end: 20200515
  26. CLOBETASOL PROPIONATE. [Concomitant]
     Active Substance: CLOBETASOL PROPIONATE
     Indication: PRODUCT USED FOR UNKNOWN INDICATION
     Dosage: UNK, BID, 0.5 DAY
     Route: 061
     Dates: start: 20170210
  27. TINZAPARIN [Concomitant]
     Active Substance: TINZAPARIN
     Indication: THROMBOSIS
     Dosage: UNK, QD
     Route: 058
     Dates: start: 20170713, end: 20170723
  28. TINZAPARIN [Concomitant]
     Active Substance: TINZAPARIN
     Dosage: UNK UNK, QD
     Route: 058
     Dates: start: 20190916
  29. AZTREONAM. [Concomitant]
     Active Substance: AZTREONAM
     Indication: BILIARY SEPSIS
     Dosage: QD
     Route: 042
     Dates: start: 20200925, end: 20200925
  30. PARACETAMOL [Concomitant]
     Active Substance: ACETAMINOPHEN
     Indication: GENERAL PHYSICAL HEALTH DETERIORATION
     Dosage: 1 G, PRN (AS REQUIRED)
     Route: 065
     Dates: start: 200601
  31. METRONIDAZOLE. [Concomitant]
     Active Substance: METRONIDAZOLE
     Indication: DUODENAL ULCER
     Dosage: 400 MILLIGRAM, MONTHLY
     Route: 048
     Dates: start: 20201116, end: 202011
  32. TEICOPLANIN [Concomitant]
     Active Substance: TEICOPLANIN
     Dosage: UNK
     Route: 042
     Dates: start: 20200925, end: 20200925
  33. TEICOPLANIN [Concomitant]
     Active Substance: TEICOPLANIN
     Dosage: UNK
     Route: 042
     Dates: start: 20201028
  34. IKERVIS [Concomitant]
     Active Substance: CYCLOSPORINE
     Indication: BLEPHARITIS
     Dosage: UNK
     Route: 047
     Dates: start: 201708
  35. DOCETAXEL. [Suspect]
     Active Substance: DOCETAXEL
     Indication: HER2 POSITIVE BREAST CANCER
     Dosage: 130 MG, Q3W
     Route: 042
     Dates: start: 20170525, end: 20170525
  36. TRASTUZUMAB EMTANSINE [Suspect]
     Active Substance: ADO-TRASTUZUMAB EMTANSINE
     Dosage: 160 MG, Q3W
     Route: 042
     Dates: start: 20190829, end: 20200326
  37. PERTUZUMAB. [Suspect]
     Active Substance: PERTUZUMAB
     Indication: HER2 POSITIVE BREAST CANCER
     Dosage: 840 MG, Q3W
     Route: 042
     Dates: start: 20170524, end: 20170524
  38. HALAVEN [Concomitant]
     Active Substance: ERIBULIN MESYLATE
     Indication: BREAST CANCER
     Dosage: 1.85 MG
     Route: 042
     Dates: start: 20200611, end: 20200820
  39. BLOOD [Concomitant]
     Active Substance: WHOLE BLOOD
     Indication: DUODENAL ULCER
     Dosage: 2 UNITS QD
     Route: 042
     Dates: start: 20201112, end: 20201112
  40. CETIRIZINE [Concomitant]
     Active Substance: CETIRIZINE HYDROCHLORIDE
     Indication: PUSTULE
     Dosage: QD
     Route: 048
     Dates: start: 20190313
  41. SANDO K [Concomitant]
     Indication: PRODUCT USED FOR UNKNOWN INDICATION
     Dosage: UNK, BID
     Route: 048
     Dates: start: 20170525
  42. FUSIDIC ACID [Concomitant]
     Active Substance: FUSIDIC ACID
     Indication: PRODUCT USED FOR UNKNOWN INDICATION
     Dosage: 2 MONTHS
     Route: 065
     Dates: start: 201905
  43. AMITRIPTYLINE HYDROCHLORIDE. [Concomitant]
     Active Substance: AMITRIPTYLINE HYDROCHLORIDE
     Indication: DEPRESSED MOOD
     Dosage: 5 MG, QD
     Route: 048
     Dates: start: 20190827
  44. MEROPENEM. [Concomitant]
     Active Substance: MEROPENEM
     Indication: BILIARY SEPSIS
     Dosage: UNK
     Route: 065
  45. MEROPENEM. [Concomitant]
     Active Substance: MEROPENEM
     Indication: ABDOMINAL PAIN
     Dosage: 2 GRAM, TID, 0.33 DAY
     Route: 042
     Dates: start: 20200502, end: 20200515
  46. VITAMIN K [Concomitant]
     Active Substance: PHYTONADIONE
     Indication: DUODENAL ULCER
     Dosage: 10 MG
     Route: 042
     Dates: start: 20201112, end: 20201113
  47. TRANEXAMIC ACID. [Concomitant]
     Active Substance: TRANEXAMIC ACID
     Indication: DUODENAL ULCER
     Dosage: 1 G
     Route: 048
     Dates: start: 20201112
  48. AZTREONAM. [Concomitant]
     Active Substance: AZTREONAM
     Dosage: UNK
     Route: 042
     Dates: start: 20201028
  49. CEFTRIAXONE. [Concomitant]
     Active Substance: CEFTRIAXONE
     Indication: BILIARY SEPSIS
     Dosage: 2 G, QD
     Route: 042
     Dates: start: 20200925, end: 20200927
  50. PARACETAMOL [Concomitant]
     Active Substance: ACETAMINOPHEN
     Dosage: AS PER REQUIRED.
     Route: 048
     Dates: start: 20170525
  51. LANSOPRAZOLE. [Concomitant]
     Active Substance: LANSOPRAZOLE
     Indication: GASTRITIS
     Dosage: UNK, QD
     Route: 048
     Dates: start: 20190730, end: 20190730
  52. CIPROFLOXACIN. [Concomitant]
     Active Substance: CIPROFLOXACIN
     Dosage: UNK, BID
     Route: 048
     Dates: start: 20200707, end: 202007
  53. CHLORPHENAMINE [Concomitant]
     Active Substance: CHLORPHENIRAMINE MALEATE
     Indication: PRODUCT USED FOR UNKNOWN INDICATION
     Dosage: UNK, QID
     Route: 048
     Dates: start: 20170526
  54. LOPERAMIDE [Concomitant]
     Active Substance: LOPERAMIDE
     Indication: PRODUCT USED FOR UNKNOWN INDICATION
     Dosage: 1 DOSAGE FORM, PRN
     Route: 048
     Dates: start: 20170613
  55. AMOXICILLIN. [Concomitant]
     Active Substance: AMOXICILLIN
     Indication: PYREXIA
     Dosage: UNK
     Route: 065
  56. TRASTUZUMAB EMTANSINE [Suspect]
     Active Substance: ADO-TRASTUZUMAB EMTANSINE
     Indication: HER2 POSITIVE BREAST CANCER
     Dosage: 240 MG, Q3W
     Route: 042
     Dates: start: 20190427, end: 20190606
  57. DOMPERIDONE [Concomitant]
     Active Substance: DOMPERIDONE
     Indication: PRODUCT USED FOR UNKNOWN INDICATION
     Dosage: 10 MILLIGRAM, 0.33 DAY
     Route: 048
     Dates: start: 20170523
  58. CALCICHEW D3 FORTE [Concomitant]
     Active Substance: CALCIUM\CHOLECALCIFEROL
     Indication: PRODUCT USED FOR UNKNOWN INDICATION
     Dosage: UNK, TID
     Route: 048
     Dates: start: 20170525
  59. TRASTUZUMAB. [Suspect]
     Active Substance: TRASTUZUMAB
     Dosage: 400 MG, Q3W
     Route: 042
     Dates: start: 20170614, end: 20180425
  60. XELODA [Concomitant]
     Active Substance: CAPECITABINE
     Indication: PRODUCT USED FOR UNKNOWN INDICATION
     Dosage: 1300 MG
     Route: 048
     Dates: start: 20201020
  61. OMEPRAZOLE. [Concomitant]
     Active Substance: OMEPRAZOLE
     Indication: GENERAL PHYSICAL HEALTH DETERIORATION
     Dosage: 40 MILLIGRAM, BID, 0.5 DAY
     Route: 048
     Dates: start: 20201113, end: 20210205
  62. VANCOMYCIN [Concomitant]
     Active Substance: VANCOMYCIN
     Dosage: 500 MILLIGRAM, QID, 0.25 DAY
     Route: 048
     Dates: start: 20201104, end: 20201113
  63. CEFUROXIME. [Concomitant]
     Active Substance: CEFUROXIME
     Dosage: 250 MILLIGRAM, BID, 0.5 DAY
     Route: 048
     Dates: start: 20201028
  64. CIPROFLOXACIN. [Concomitant]
     Active Substance: CIPROFLOXACIN
     Indication: PYREXIA
     Dosage: 250 MG, BID
     Route: 048
     Dates: start: 20200726, end: 20200801

REACTIONS (3)
  - Coagulopathy [Recovering/Resolving]
  - Off label use [Unknown]
  - Neuropathy peripheral [Recovering/Resolving]

NARRATIVE: CASE EVENT DATE: 20190716
